FAERS Safety Report 6554075-4 (Version None)
Quarter: 2010Q1

REPORT INFORMATION
  Report Type: 
  Country: None (occurrence: None)
  Receive Date: 20100125
  Receipt Date: 20100125
  Transmission Date: 20100710
  Serious: Yes (Death)
  Sender: FDA-Public Use
  Company Number: None

PATIENT
  Sex: Female
  Weight: 109.1 kg

DRUGS (18)
  1. PACLITAXEL [Suspect]
     Indication: BREAST CANCER STAGE IV
     Dosage: PACLITAXEL 190MG-216MG 3 TIMES MONTHLY IV
     Route: 042
     Dates: start: 20090916, end: 20090923
  2. AVASTIN [Suspect]
     Indication: BREAST CANCER STAGE IV
     Dosage: AVASTIN 1338MG TWICE A MONTH IV
     Route: 042
     Dates: start: 20090916
  3. AVASTIN [Suspect]
  4. ASPIRIN [Concomitant]
  5. PRAVASTATIN [Concomitant]
  6. DEMADEX [Concomitant]
  7. POTASSIUM CHLORIDE [Concomitant]
  8. PHENERGAN HCL [Concomitant]
  9. STARLIX [Concomitant]
  10. CALCIUM WITH VITAMIN D [Concomitant]
  11. OXYCODONE HCL AND ACETAMINOPHEN [Concomitant]
  12. METOLAZONE [Concomitant]
  13. DEXAMETHASONE [Concomitant]
  14. GABAPENTIN [Concomitant]
  15. VERAPAMIL [Concomitant]
  16. MORPHINE [Concomitant]
  17. NAPROXEN [Concomitant]
  18. VITAMIN B-12 [Concomitant]

REACTIONS (8)
  - ABDOMINAL PAIN [None]
  - DEHYDRATION [None]
  - DIARRHOEA [None]
  - NAUSEA [None]
  - NEUTROPENIA [None]
  - PYREXIA [None]
  - RENAL FAILURE [None]
  - VOMITING [None]
